FAERS Safety Report 6945631-X (Version None)
Quarter: 2010Q3

REPORT INFORMATION
  Report Type: 
  Country: None (occurrence: None)
  Receive Date: 20100827
  Receipt Date: 20100823
  Transmission Date: 20110219
  Serious: Yes (Hospitalization, Disabling)
  Sender: FDA-Public Use
  Company Number: US-MERCK-1008USA03103

PATIENT
  Age: 64 Year
  Sex: Female

DRUGS (27)
  1. DECADRON [Suspect]
     Indication: MULTIPLE MYELOMA
     Route: 048
  2. THALOMID [Suspect]
     Indication: MULTIPLE MYELOMA
     Route: 048
     Dates: start: 20091223, end: 20100301
  3. VELCADE [Suspect]
     Indication: MULTIPLE MYELOMA
     Dosage: DAY 1, 4, 8 AND 11
     Route: 042
     Dates: start: 20091117, end: 20100114
  4. VELCADE [Suspect]
     Dosage: DAY 1, 4, 8 AND 11
     Route: 042
     Dates: end: 20100301
  5. SYNTHROID [Concomitant]
     Route: 065
  6. VICODIN [Concomitant]
     Route: 065
  7. ACYCLOVIR [Concomitant]
     Route: 065
  8. ALBUTEROL [Concomitant]
     Route: 065
  9. ASPIRIN [Concomitant]
     Route: 065
  10. ADVAIR DISKUS 100/50 [Concomitant]
     Route: 065
  11. COREG [Concomitant]
     Route: 065
  12. PROCHLORPERAZINE [Concomitant]
     Route: 065
  13. CRESTOR [Concomitant]
     Route: 065
  14. COLACE [Concomitant]
     Route: 065
  15. POTASSIUM CHLORIDE [Concomitant]
     Route: 065
  16. LORATADINE [Concomitant]
     Route: 065
  17. OMEPRAZOLE [Concomitant]
     Route: 065
  18. PERCOCET [Concomitant]
     Route: 065
  19. NEUPOGEN [Concomitant]
     Route: 065
  20. ZOFRAN [Concomitant]
     Route: 065
  21. FOLIC ACID [Concomitant]
     Route: 065
  22. DULCOLAX [Concomitant]
     Route: 065
  23. DURAGESIC-100 [Concomitant]
     Route: 061
  24. DURAGESIC-100 [Concomitant]
     Route: 061
  25. LOVENOX [Concomitant]
     Indication: THROMBOSIS PROPHYLAXIS
     Route: 065
  26. LASIX [Concomitant]
     Route: 048
  27. ZOLOFT [Concomitant]
     Route: 065

REACTIONS (12)
  - ACUTE RESPIRATORY FAILURE [None]
  - ANAEMIA [None]
  - ASTHENIA [None]
  - BACK PAIN [None]
  - BRONCHITIS [None]
  - DEHYDRATION [None]
  - DIARRHOEA [None]
  - MYOPATHY [None]
  - NAUSEA [None]
  - NEUROPATHY PERIPHERAL [None]
  - PNEUMOCOCCAL INFECTION [None]
  - VOMITING [None]
